FAERS Safety Report 10433318 (Version 1)
Quarter: 2014Q3

REPORT INFORMATION
  Report Type: Spontaneous
  Country: ES (occurrence: ES)
  Receive Date: 20140905
  Receipt Date: 20140905
  Transmission Date: 20150326
  Serious: Yes (Other)
  Sender: FDA-Public Use
  Company Number: ES-ABBVIE-14P-144-1279042-00

PATIENT
  Age: 11 Year
  Sex: Female

DRUGS (1)
  1. DEPAKINE [Suspect]
     Active Substance: VALPROATE SODIUM
     Indication: IDIOPATHIC GENERALISED EPILEPSY
     Route: 048
     Dates: start: 20130901, end: 20140722

REACTIONS (3)
  - Disturbance in attention [Recovered/Resolved]
  - Aggression [Recovered/Resolved]
  - Hyperphagia [Recovered/Resolved]

NARRATIVE: CASE EVENT DATE: 20130901
